FAERS Safety Report 9148740 (Version 1)
Quarter: 2013Q1

REPORT INFORMATION
  Report Type: Spontaneous
  Country: US (occurrence: US)
  Receive Date: 20130308
  Receipt Date: 20130308
  Transmission Date: 20140127
  Serious: Yes (Other)
  Sender: FDA-Public Use
  Company Number: US-AMGEN-USASP2013013052

PATIENT
  Sex: Female

DRUGS (3)
  1. ARANESP [Suspect]
     Indication: PRODUCT USED FOR UNKNOWN INDICATION
     Dosage: 50 MUG, UNK
  2. PROCRIT [Concomitant]
     Indication: PAIN
  3. PERCOCET                           /00446701/ [Concomitant]

REACTIONS (2)
  - Spinal fusion surgery [Unknown]
  - Back pain [Unknown]
